FAERS Safety Report 10261577 (Version 2)
Quarter: 2014Q3

REPORT INFORMATION
  Report Type: Spontaneous
  Country: JP (occurrence: JP)
  Receive Date: 20140626
  Receipt Date: 20140702
  Transmission Date: 20150326
  Serious: Yes (Other)
  Sender: FDA-Public Use
  Company Number: JP-ASTRAZENECA-2014SE45600

PATIENT
  Age: 79 Year
  Sex: Male

DRUGS (2)
  1. BICALUTAMIDE ( NON AZ PRODUCT) [Suspect]
     Active Substance: BICALUTAMIDE
     Indication: PROSTATE CANCER
     Route: 048
  2. REBAMIPIDE [Concomitant]
     Active Substance: REBAMIPIDE
     Indication: GASTRITIS

REACTIONS (6)
  - Gastritis [None]
  - Overdose [Unknown]
  - Pyrexia [None]
  - Depressed level of consciousness [None]
  - Haemodialysis [None]
  - Drug-induced liver injury [Recovering/Resolving]
